FAERS Safety Report 12428700 (Version 2)
Quarter: 2016Q3

REPORT INFORMATION
  Report Type: Spontaneous
  Country: US (occurrence: US)
  Receive Date: 20160602
  Receipt Date: 20160822
  Transmission Date: 20161109
  Serious: No
  Sender: FDA-Public Use
  Company Number: GXBR2016US001866

PATIENT
  Sex: Male

DRUGS (2)
  1. BUDESONIDE SANDOZ [Suspect]
     Active Substance: BUDESONIDE
     Indication: PRODUCT USED FOR UNKNOWN INDICATION
     Dosage: 0.5 MG, UNK
     Route: 055
     Dates: end: 20160511
  2. BUDESONIDE SANDOZ [Suspect]
     Active Substance: BUDESONIDE
     Dosage: 1 MG, UNK
     Route: 055
     Dates: start: 20160512

REACTIONS (2)
  - Aggression [Not Recovered/Not Resolved]
  - Mood swings [Not Recovered/Not Resolved]
